FAERS Safety Report 9190943 (Version 1)
Quarter: 2013Q1

REPORT INFORMATION
  Report Type: Spontaneous
  Country: US (occurrence: US)
  Receive Date: 20130326
  Receipt Date: 20130326
  Transmission Date: 20140127
  Serious: No
  Sender: FDA-Public Use
  Company Number: US-009507513-1303USA011304

PATIENT
  Age: 42 None
  Sex: Female

DRUGS (2)
  1. AZASITE [Suspect]
     Indication: CONJUNCTIVITIS INFECTIVE
     Dosage: ONE DROP IN EACH EYE TWICE A DAY  FOR TWO DAYS
     Route: 047
     Dates: start: 20130318, end: 20130319
  2. AZASITE [Suspect]
     Dosage: UNK
     Route: 047
     Dates: start: 201303

REACTIONS (3)
  - Drug ineffective [Unknown]
  - Drug dose omission [Unknown]
  - Product quality issue [Unknown]
